FAERS Safety Report 11675927 (Version 1)
Quarter: 2015Q4

REPORT INFORMATION
  Report Type: Spontaneous
  Country: IT (occurrence: IT)
  Receive Date: 20151028
  Receipt Date: 20151028
  Transmission Date: 20160304
  Serious: Yes (Other)
  Sender: FDA-Public Use
  Company Number: IT-B. BRAUN MEDICAL INC.-1043495

PATIENT
  Age: 84 Year
  Sex: Female

DRUGS (4)
  1. SODIUM CHLORIDE. [Suspect]
     Active Substance: SODIUM CHLORIDE
  2. ALDACTANE [Concomitant]
  3. CONGESCOR [Concomitant]
     Active Substance: BISOPROLOL
  4. CLEXANE [Concomitant]
     Active Substance: ENOXAPARIN SODIUM

REACTIONS (2)
  - Nausea [Recovered/Resolved]
  - Malaise [Recovered/Resolved]
